FAERS Safety Report 7810329-2 (Version None)
Quarter: 2011Q4

REPORT INFORMATION
  Report Type: 
  Country: None (occurrence: None)
  Receive Date: 20111012
  Receipt Date: 20111006
  Transmission Date: 20120403
  Serious: Yes (Death, Congenital Anomaly, Other)
  Sender: FDA-Public Use
  Company Number: RU-ABBOTT-11P-251-0861628-00

PATIENT

DRUGS (1)
  1. DEPAKENE [Suspect]
     Indication: MATERNAL EXPOSURE DURING PREGNANCY
     Route: 064

REACTIONS (7)
  - CONGENITAL ORAL MALFORMATION [None]
  - ABORTION INDUCED [None]
  - HEART DISEASE CONGENITAL [None]
  - CONGENITAL ANOMALY [None]
  - CONGENITAL CENTRAL NERVOUS SYSTEM ANOMALY [None]
  - MULTIPLE CONGENITAL ABNORMALITIES [None]
  - MATERNAL EXPOSURE DURING PREGNANCY [None]
